FAERS Safety Report 9826903 (Version 1)
Quarter: 2014Q1

REPORT INFORMATION
  Report Type: Spontaneous
  Country: US (occurrence: None)
  Receive Date: 20140115
  Receipt Date: 20140115
  Transmission Date: 20141002
  Serious: Yes (Other)
  Sender: FDA-Public Use
  Company Number: UTC-042761

PATIENT
  Age: 67 Year
  Sex: Male

DRUGS (13)
  1. REMODULIN (INJECTION FOR INFUSION) (TREPROSTINIL SODIUM) [Suspect]
     Indication: PULMONARY ARTERIAL HYPERTENSION
     Dosage: 0.039 UG/KG, 1 IN 1 MIN
     Route: 058
     Dates: start: 20120711
  2. ADCIRCA (TADALAFIL) (UNKNOWN) [Concomitant]
  3. ZOCOR (SIMVASTATIN) (UNKNOWN) [Concomitant]
  4. CENTRUM (MULTIVITAMIN /00831701/) (UNKNOWN) [Concomitant]
  5. TRACLEER (BOSENTAN) (UNKOWN) [Concomitant]
  6. ALLOPURINOL (UNKNOWN) [Concomitant]
  7. LASIX (FUROSEMIDE) (UNKNOWN) [Concomitant]
  8. COUMADIN (WARFARIN) (UNKNOWN) [Concomitant]
  9. LOPRESSOR (METOPROLOL TARTRATE) (UNKNOWN) [Concomitant]
  10. WELLBUTRIN (BUPROPION) (UNKNOWN) [Concomitant]
  11. KLOR-CON (POTASSIUM CHLORIDE) (UNKNOWN) [Concomitant]
  12. METFORMIN (UNKNOWN) [Concomitant]
  13. BUPROPION (UNKNOWN) [Concomitant]

REACTIONS (5)
  - Infusion site abscess [None]
  - Infusion site infection [None]
  - Staphylococcus test positive [None]
  - Micrococcus test positive [None]
  - Moraxella test positive [None]
